FAERS Safety Report 4906122-0 (Version None)
Quarter: 2006Q1

REPORT INFORMATION
  Report Type: 
  Country: None (occurrence: None)
  Receive Date: 20060207
  Receipt Date: 20060207
  Transmission Date: 20060701
  Serious: Yes (Hospitalization, Other)
  Sender: FDA-Public Use
  Company Number: None

PATIENT
  Sex: Female
  Weight: 72.8 kg

DRUGS (1)
  1. DOXIL [Suspect]
     Indication: DIFFUSE LARGE B-CELL LYMPHOMA
     Dosage: 63 MG
     Route: 042
     Dates: start: 20051230, end: 20051230

REACTIONS (2)
  - FEBRILE NEUTROPENIA [None]
  - STAPHYLOCOCCAL BACTERAEMIA [None]
